FAERS Safety Report 7502634-4 (Version None)
Quarter: 2011Q2

REPORT INFORMATION
  Report Type: 
  Country: None (occurrence: None)
  Receive Date: 20110525
  Receipt Date: 20110512
  Transmission Date: 20111010
  Serious: Yes (Hospitalization)
  Sender: FDA-Public Use
  Company Number: PHHY2011US40975

PATIENT
  Sex: Female

DRUGS (6)
  1. NEXIUM [Concomitant]
  2. DILTIAZEM [Concomitant]
     Dosage: 180 MG, CD
  3. PERCOGESIC [Concomitant]
  4. VALIUM [Concomitant]
  5. GLEEVEC [Suspect]
     Dosage: 300 MG, QD
     Route: 048
  6. LORAZEPAM [Concomitant]
     Dosage: UNK

REACTIONS (3)
  - POLLAKIURIA [None]
  - MICTURITION URGENCY [None]
  - NEPHROLITHIASIS [None]
